FAERS Safety Report 7507289-0 (Version None)
Quarter: 2011Q2

REPORT INFORMATION
  Report Type: 
  Country: None (occurrence: None)
  Receive Date: 20110526
  Receipt Date: 20110524
  Transmission Date: 20111010
  Serious: Yes (Hospitalization)
  Sender: FDA-Public Use
  Company Number: IE-PFIZER INC-2011111653

PATIENT
  Age: 66 Year
  Sex: Female

DRUGS (4)
  1. PERINDOPRIL [Concomitant]
  2. ZOLPIDEM TARTRATE [Concomitant]
     Indication: SLEEP DISORDER
  3. LIPITOR [Suspect]
     Dosage: 10 MG, UNK
  4. ASPIRIN [Concomitant]
     Dosage: 300 UNK, UNK

REACTIONS (2)
  - NIGHTMARE [None]
  - ABNORMAL DREAMS [None]
